FAERS Safety Report 11381689 (Version 1)
Quarter: 2015Q3

REPORT INFORMATION
  Report Type: Spontaneous
  Country: IT (occurrence: IT)
  Receive Date: 20150814
  Receipt Date: 20150814
  Transmission Date: 20151125
  Serious: Yes (Hospitalization)
  Sender: FDA-Public Use
  Company Number: IT-SA-2015SA120012

PATIENT
  Age: 81 Year
  Sex: Female
  Weight: 93 kg

DRUGS (10)
  1. SIVASTIN [Concomitant]
     Active Substance: SIMVASTATIN
  2. COUMADIN [Interacting]
     Active Substance: WARFARIN SODIUM
     Indication: ATRIAL FIBRILLATION
     Dosage: DIVISIBLE TABLETS
     Route: 048
     Dates: end: 201411
  3. PLAVIX [Suspect]
     Active Substance: CLOPIDOGREL BISULFATE
     Indication: THROMBOSIS PROPHYLAXIS
     Route: 048
  4. EUTIROX [Concomitant]
     Active Substance: LEVOTHYROXINE SODIUM
     Indication: HYPOTHYROIDISM
  5. ZYLORIC [Concomitant]
     Active Substance: ALLOPURINOL
     Dosage: DIVISIBLE TABLETS
  6. LASIX [Concomitant]
     Active Substance: FUROSEMIDE
  7. PANTORC [Concomitant]
     Active Substance: PANTOPRAZOLE SODIUM
  8. ARANESP [Concomitant]
     Active Substance: DARBEPOETIN ALFA
     Indication: ANAEMIA
     Dosage: SOLUTION FOR INJECTION PRE-FILLED SYRINGE 1 0.5 ML SUBCUTANEOUS AND ?INTRAVENOUS USE
  9. CONGESCOR [Concomitant]
     Active Substance: BISOPROLOL
  10. TRITTICO [Concomitant]
     Active Substance: TRAZODONE HYDROCHLORIDE
     Dosage: FORM: PROLONGED RELEASE DIVISIBLE TABLETS

REACTIONS (7)
  - Skin discolouration [Recovering/Resolving]
  - Anaemia [Recovering/Resolving]
  - Drug interaction [Unknown]
  - Joint swelling [Recovering/Resolving]
  - Asthenia [Recovering/Resolving]
  - Melaena [Recovering/Resolving]
  - Dyspnoea [Recovering/Resolving]

NARRATIVE: CASE EVENT DATE: 20150705
